FAERS Safety Report 10706263 (Version 1)
Quarter: 2015Q1

REPORT INFORMATION
  Report Type: Spontaneous
  Country: US (occurrence: None)
  Receive Date: 20150109
  Receipt Date: 20150109
  Transmission Date: 20150721
  Serious: Yes (Hospitalization)
  Sender: FDA-Public Use
  Company Number: None

PATIENT
  Age: 60 Year
  Sex: Female

DRUGS (1)
  1. COPAXONE [Suspect]
     Active Substance: GLATIRAMER ACETATE
     Indication: MULTIPLE SCLEROSIS
     Route: 058
     Dates: start: 20140429, end: 20150104

REACTIONS (6)
  - Malaise [None]
  - Ocular hyperaemia [None]
  - Erythema [None]
  - Dyspnoea [None]
  - Chest pain [None]
  - Immediate post-injection reaction [None]

NARRATIVE: CASE EVENT DATE: 20150104
